FAERS Safety Report 10802681 (Version 2)
Quarter: 2015Q1

REPORT INFORMATION
  Report Type: Spontaneous
  Country: US (occurrence: US)
  Receive Date: 20150217
  Receipt Date: 20150313
  Transmission Date: 20150721
  Serious: Yes (Hospitalization)
  Sender: FDA-Public Use
  Company Number: US-BAXTER-2015BAX008041

PATIENT
  Sex: Female

DRUGS (2)
  1. DIANEAL LOW CALCIUM PERITONEAL DIALYSIS SOLUTION WITH DEXTROSE [Suspect]
     Active Substance: CALCIUM CHLORIDE\DEXTROSE\MAGNESIUM CHLORIDE\SODIUM CHLORIDE\SODIUM LACTATE
     Indication: CHRONIC KIDNEY DISEASE
     Route: 033
     Dates: start: 201412, end: 20150127
  2. DIANEAL LOW CALCIUM PERITONEAL DIALYSIS SOLUTION WITH DEXTROSE [Suspect]
     Active Substance: CALCIUM CHLORIDE\DEXTROSE\MAGNESIUM CHLORIDE\SODIUM CHLORIDE\SODIUM LACTATE
     Indication: CHRONIC KIDNEY DISEASE
     Route: 033
     Dates: start: 201412, end: 20150127

REACTIONS (11)
  - Infection [Recovered/Resolved]
  - Haematoma [Recovering/Resolving]
  - Atrial fibrillation [Recovered/Resolved]
  - Hypotension [Recovered/Resolved]
  - Seasonal allergy [Unknown]
  - Respiratory disorder [Recovered/Resolved]
  - Immune system disorder [Recovering/Resolving]
  - Atrial flutter [Recovered/Resolved]
  - Pneumonia [Recovered/Resolved]
  - Oedema [Recovering/Resolving]
  - Skin disorder [Recovered/Resolved]

NARRATIVE: CASE EVENT DATE: 201501
